FAERS Safety Report 8855450 (Version 1)
Quarter: 2012Q4

REPORT INFORMATION
  Report Type: Report from Study
  Country: US (occurrence: US)
  Receive Date: 20121023
  Receipt Date: 20121023
  Transmission Date: 20130627
  Serious: Yes (Hospitalization)
  Sender: FDA-Public Use
  Company Number: US-009507513-1110USA02305

PATIENT
  Age: 67 Year
  Sex: Female
  Weight: 41.73 kg

DRUGS (8)
  1. VORINOSTAT [Suspect]
     Dosage: UNK
     Route: 048
     Dates: start: 20120614, end: 20120926
  2. NORVASC [Concomitant]
     Indication: HYPERTENSION
     Dosage: 5 mg, qd
  3. COLACE [Concomitant]
     Indication: CONSTIPATION
  4. ZOFRAN [Concomitant]
     Indication: NAUSEA
  5. ALEVE [Concomitant]
     Indication: ARTHRALGIA
  6. ALEVE [Concomitant]
     Indication: PAIN
  7. ARMOUR THYROID TABLETS [Concomitant]
     Indication: HYPERPARATHYROIDISM
     Dosage: 30 mg, qd
  8. PREMARIN [Concomitant]
     Indication: MENOPAUSE

REACTIONS (7)
  - Neutropenia [Recovered/Resolved]
  - Abdominal pain [Recovered/Resolved]
  - Renal failure acute [Recovered/Resolved]
  - Dehydration [Recovered/Resolved]
  - Syncope [Recovered/Resolved]
  - Fistula [Recovered/Resolved]
  - Abdominal pain [Recovered/Resolved]
